FAERS Safety Report 22591035 (Version 1)
Quarter: 2023Q2

REPORT INFORMATION
  Report Type: Spontaneous
  Country: US (occurrence: US)
  Receive Date: 20230612
  Receipt Date: 20230612
  Transmission Date: 20230721
  Serious: No
  Sender: FDA-Public Use
  Company Number: US-MYLANLABS-2023M1055650

PATIENT
  Sex: Female

DRUGS (8)
  1. DILANTIN [Suspect]
     Active Substance: PHENYTOIN
     Indication: Product used for unknown indication
     Dosage: UNK
     Route: 065
  2. XOLAIR [Concomitant]
     Active Substance: OMALIZUMAB
     Dosage: UNK
     Route: 065
  3. LEVALBUTEROL [Concomitant]
     Active Substance: LEVALBUTEROL
     Dosage: UNK
     Route: 065
  4. PHENOBARBITAL [Concomitant]
     Active Substance: PHENOBARBITAL
     Dosage: UNK
     Route: 065
  5. NEILMED SINUS RINSE [Concomitant]
     Active Substance: SODIUM BICARBONATE\SODIUM CHLORIDE
     Dosage: UNK
     Route: 065
  6. BENADRYL [Concomitant]
     Active Substance: DIPHENHYDRAMINE HYDROCHLORIDE
     Dosage: UNK
     Route: 065
  7. FAMOTIDINE [Concomitant]
     Active Substance: FAMOTIDINE
     Dosage: UNK
     Route: 065
  8. EPINEPHRINE [Concomitant]
     Active Substance: EPINEPHRINE
     Dosage: UNK
     Route: 065

REACTIONS (2)
  - Lip swelling [Not Recovered/Not Resolved]
  - Urticaria [Not Recovered/Not Resolved]
